FAERS Safety Report 8302544 (Version 14)
Quarter: 2014Q3

REPORT INFORMATION
  Report Type: Report from Study
  Country: RU (occurrence: RU)
  Receive Date: 20111220
  Receipt Date: 20140721
  Transmission Date: 20150326
  Serious: Yes (Death, Hospitalization, Other)
  Sender: FDA-Public Use
  Company Number: RU-ROCHE-1022556

PATIENT
  Age: 58 Year
  Sex: Female
  Weight: 53.5 kg

DRUGS (4)
  1. VEMURAFENIB [Suspect]
     Active Substance: VEMURAFENIB
     Indication: MALIGNANT MELANOMA
     Route: 048
     Dates: start: 20111205, end: 20111213
  2. KETANOV [Concomitant]
     Active Substance: KETOROLAC\KETOROLAC TROMETHAMINE
     Route: 065
     Dates: start: 20111210
  3. SPASMALGON [Concomitant]
     Active Substance: FENPIVERINIUM BROMIDE\METAMIZOLE SODIUM\PITOFENONE HYDROCHLORIDE
     Dosage: 1 TABLET DAILY
     Route: 065
     Dates: start: 20111210
  4. VEMURAFENIB [Suspect]
     Active Substance: VEMURAFENIB
     Dosage: DOSE REDUCED?LAST DOSE PRIOR TO ONSET ON ANAEMIA WAS ON 02/JAN/2014
     Route: 048
     Dates: start: 20111226, end: 20120103

REACTIONS (3)
  - Haemoptysis [Recovered/Resolved]
  - Anaemia [Recovering/Resolving]
  - Haemorrhagic stroke [Fatal]

NARRATIVE: CASE EVENT DATE: 20111210
